FAERS Safety Report 5094253-7 (Version None)
Quarter: 2006Q3

REPORT INFORMATION
  Report Type: 
  Country: None (occurrence: None)
  Receive Date: 20060831
  Receipt Date: 20060208
  Transmission Date: 20061208
  Serious: Yes (Hospitalization, Other)
  Sender: FDA-Public Use
  Company Number: GB-GLAXOSMITHKLINE-B0409909A

PATIENT
  Age: 22 Year
  Sex: Male

DRUGS (5)
  1. COMBIVIR [Suspect]
     Dosage: 1UNIT TWICE PER DAY
     Route: 048
     Dates: start: 20060203
  2. NELFINAVIR [Concomitant]
     Dosage: 250MG TWICE PER DAY
     Route: 048
     Dates: start: 20060203
  3. MIRTAZAPINE [Concomitant]
     Dosage: 45MG PER DAY
     Route: 048
  4. VALPROATE SODIUM [Concomitant]
     Dosage: 500MG TWICE PER DAY
     Route: 048
     Dates: start: 20040101
  5. ALBUTEROL SPIROS [Concomitant]
     Route: 055

REACTIONS (1)
  - STATUS EPILEPTICUS [None]
